FAERS Safety Report 8910862 (Version 2)
Quarter: 2012Q4

REPORT INFORMATION
  Report Type: 
  Country: FR (occurrence: FR)
  Receive Date: 20121115
  Receipt Date: 20121228
  Transmission Date: 20130627
  Serious: Yes (Death, Hospitalization)
  Sender: FDA-Public Use
  Company Number: FR-ELI_LILLY_AND_COMPANY-FR201211002110

PATIENT
  Age: 88 Year
  Sex: Female
  Weight: 64 kg

DRUGS (7)
  1. FORSTEO [Suspect]
     Indication: OSTEOPOROSIS
     Dosage: 20 ug, qd
     Route: 058
     Dates: start: 201106, end: 20121024
  2. LEVOTHYROX [Concomitant]
     Indication: HYPOTHYROIDISM
     Dosage: 100 u, qd
  3. APROVEL [Concomitant]
     Indication: HYPERTENSION
     Dosage: 300 mg, qd
  4. LASILIX [Concomitant]
     Indication: HYPERTENSION
     Dosage: 20 mg, qd
  5. PLAVIX [Concomitant]
     Indication: PROPHYLAXIS
     Dosage: 75 mg, qd
     Dates: start: 20120214
  6. OMEPRAZOLE [Concomitant]
     Indication: PROPHYLAXIS
     Dosage: 20 mg, qd
  7. OROCAL D3 [Concomitant]
     Indication: OSTEOPOROSIS
     Dosage: 1 DF, qd

REACTIONS (4)
  - Respiratory failure [Fatal]
  - Respiratory distress [Fatal]
  - Fall [Unknown]
  - Rib fracture [Unknown]
